FAERS Safety Report 10118665 (Version 2)
Quarter: 2015Q1

REPORT INFORMATION
  Report Type: Other
  Country: US (occurrence: US)
  Receive Date: 20140426
  Receipt Date: 20150211
  Transmission Date: 20150720
  Serious: Yes (Hospitalization, Other)
  Sender: FDA-Public Use
  Company Number: US-GSKPPD-2014GSK020931

PATIENT
  Age: 75 Year
  Sex: Female

DRUGS (7)
  1. ZESTRIL [Concomitant]
     Active Substance: LISINOPRIL
  2. AVANDIA [Suspect]
     Active Substance: ROSIGLITAZONE MALEATE
     Indication: DIABETES MELLITUS
     Dosage: AVANDIA WAS NOT LISTED AMONG THE PATIENTS RECORDS REVIEWED.
     Route: 048
  3. LASIX [Concomitant]
     Active Substance: FUROSEMIDE
  4. ASPIRIN. [Concomitant]
     Active Substance: ASPIRIN
  5. PLAVIX [Concomitant]
     Active Substance: CLOPIDOGREL BISULFATE
  6. TOPROL XL [Concomitant]
     Active Substance: METOPROLOL SUCCINATE
  7. LANOXIN [Concomitant]
     Active Substance: DIGOXIN

REACTIONS (3)
  - Coronary artery disease [Recovered/Resolved]
  - Myocardial infarction [Unknown]
  - Angina pectoris [Recovered/Resolved]

NARRATIVE: CASE EVENT DATE: 20100409
